FAERS Safety Report 25713318 (Version 1)
Quarter: 2025Q3

REPORT INFORMATION
  Report Type: Spontaneous
  Country: GB (occurrence: None)
  Receive Date: 20250822
  Receipt Date: 20250822
  Transmission Date: 20251020
  Serious: Yes (Congenital Anomaly)
  Sender: Alvotech
  Company Number: None

PATIENT
  Age: 25 Year
  Sex: Female
  Weight: 80 kg

DRUGS (2)
  1. USTEKINUMAB [Suspect]
     Active Substance: USTEKINUMAB
     Indication: Crohn^s disease
     Dosage: 90MG S/C 8 WEEKLY
     Route: 058
     Dates: start: 2020
  2. FOLIC ACID [Concomitant]
     Active Substance: FOLIC ACID

REACTIONS (2)
  - Premature labour [Unknown]
  - Maternal exposure during pregnancy [Unknown]
